FAERS Safety Report 7968840-X (Version None)
Quarter: 2011Q4

REPORT INFORMATION
  Report Type: 
  Country: None (occurrence: None)
  Receive Date: 20111122
  Receipt Date: 20110803
  Transmission Date: 20120403
  Serious: Yes (Other)
  Sender: FDA-Public Use
  Company Number: PHHY2011US66735

PATIENT
  Age: 44 Year
  Sex: Female

DRUGS (17)
  1. PREGABALIN (PREGABALIN) CAPSULE [Concomitant]
  2. ERGOCALCIFEROL (ERGOCALCIFEROL) CAPSULE, 50000 U [Concomitant]
  3. MULTIVITAMINS (ASCORBIC ACID, ERGOCALCIFEROL, FOLIC ACID, NICOTINAMIDE [Concomitant]
  4. MONTELUKAST (MONTELUKAST) TABLET [Concomitant]
  5. ARMODAFINIL (ARMODAFINIL), 50 MG [Concomitant]
  6. GILENYA [Suspect]
     Indication: MULTIPLE SCLEROSIS
     Dosage: 0.5 MG, QD, ORAL
     Route: 048
     Dates: start: 20110314
  7. SOLU-MEDROL (METHYLPREDNISOLONE SODIUM SUCCINATE) 02/--/2011 TO UNK [Concomitant]
  8. NAPROXEN (ALEVE) [Concomitant]
  9. MOMETASONE (MOMETASONE) NASAL SPRAY, 50 UG [Concomitant]
  10. CELLCEPT (MYCOPHENOLATE MOFETIL) UNK TO 02/13/2011 [Concomitant]
  11. FLUOXETINE [Concomitant]
  12. FUROSEMIDE (FUROSEMIDE) TABLET, 20 MG [Concomitant]
  13. LEVETIRACETAM [Concomitant]
  14. POTASSIUM CHLORIDE (POTASSIUM CHLORIDE) SLOW RELEASE TABLET, 20 MEQ [Concomitant]
  15. SYNTHROID (LEVOTHYROXINE SODIUM) TABLET, 50 UG [Concomitant]
  16. LEVETIRACETAM [Concomitant]
  17. TIZANIDINE (TIZANIDINE) CAPSULE, 2MG [Concomitant]

REACTIONS (5)
  - MEAN CELL HAEMOGLOBIN DECREASED [None]
  - LEUKOPENIA [None]
  - MEAN CELL HAEMOGLOBIN CONCENTRATION DECREASED [None]
  - WHITE BLOOD CELL COUNT DECREASED [None]
  - HAEMOGLOBIN DECREASED [None]
